FAERS Safety Report 16821926 (Version 1)
Quarter: 2019Q3

REPORT INFORMATION
  Report Type: Spontaneous
  Country: GB (occurrence: GB)
  Receive Date: 20190918
  Receipt Date: 20190918
  Transmission Date: 20191005
  Serious: Yes (Disabling, Other)
  Sender: FDA-Public Use
  Company Number: GB-PFIZER INC-2019398524

PATIENT
  Age: 68 Year
  Sex: Female
  Weight: 53.97 kg

DRUGS (1)
  1. GENTAMICIN SULFATE. [Suspect]
     Active Substance: GENTAMICIN SULFATE
     Indication: INFLUENZA
     Dosage: UNK
     Route: 051
     Dates: end: 20170108

REACTIONS (5)
  - Off label use [Unknown]
  - Cognitive disorder [Unknown]
  - Product use in unapproved indication [Unknown]
  - Balance disorder [Unknown]
  - Vestibular disorder [Recovered/Resolved with Sequelae]

NARRATIVE: CASE EVENT DATE: 20170110
